FAERS Safety Report 14639024 (Version 1)
Quarter: 2018Q1

REPORT INFORMATION
  Report Type: Spontaneous
  Country: FR (occurrence: FR)
  Receive Date: 20180315
  Receipt Date: 20180315
  Transmission Date: 20180509
  Serious: Yes (Other)
  Sender: FDA-Public Use
  Company Number: FR-MERCK KGAA-2043759

PATIENT
  Sex: Female

DRUGS (1)
  1. NOVOTHYROX [Suspect]
     Active Substance: LEVOTHYROXINE SODIUM
     Indication: PRODUCT USED FOR UNKNOWN INDICATION

REACTIONS (18)
  - Alopecia [None]
  - Menorrhagia [None]
  - Apathy [None]
  - Dizziness [None]
  - Emotional distress [None]
  - Fatigue [None]
  - Myalgia [None]
  - Loss of personal independence in daily activities [None]
  - Malaise [None]
  - Somnolence [None]
  - Amnesia [None]
  - Asthenia [None]
  - Insomnia [None]
  - Onychoclasis [None]
  - Migraine [None]
  - Oligomenorrhoea [None]
  - Depression [None]
  - Bedridden [None]
